FAERS Safety Report 19603348 (Version 3)
Quarter: 2021Q3

REPORT INFORMATION
  Report Type: Report from Study
  Country: CA (occurrence: CA)
  Receive Date: 20210723
  Receipt Date: 20210831
  Transmission Date: 20211014
  Serious: Yes (Other)
  Sender: FDA-Public Use
  Company Number: CA-ASTRAZENECA-2021A587966

PATIENT
  Sex: Female

DRUGS (14)
  1. CINQUAIR [Concomitant]
  2. ATROVENT [Concomitant]
     Active Substance: IPRATROPIUM BROMIDE
  3. AZITHROMYCIN ANHYDROUS. [Concomitant]
     Active Substance: AZITHROMYCIN ANHYDROUS
  4. VENTOLIN [Concomitant]
     Active Substance: ALBUTEROL SULFATE
  5. PREDNISONE. [Concomitant]
     Active Substance: PREDNISONE
  6. FASENRA [Suspect]
     Active Substance: BENRALIZUMAB
     Indication: ASTHMA
     Dosage: 30.0MG UNKNOWN
     Route: 058
     Dates: start: 20190109
  7. ZENHALE [Concomitant]
     Active Substance: FORMOTEROL FUMARATE\MOMETASONE FUROATE
  8. XOLAIR [Concomitant]
     Active Substance: OMALIZUMAB
  9. SPIRIVA [Concomitant]
     Active Substance: TIOTROPIUM BROMIDE MONOHYDRATE
  10. ALVESCO [Concomitant]
     Active Substance: CICLESONIDE
  11. ERYTHROMYCIN. [Concomitant]
     Active Substance: ERYTHROMYCIN
  12. FLOVENT [Concomitant]
     Active Substance: FLUTICASONE PROPIONATE
  13. RESIDRONATE [Concomitant]
  14. NUCALA [Concomitant]
     Active Substance: MEPOLIZUMAB

REACTIONS (3)
  - Asthma [Recovering/Resolving]
  - Drug ineffective [Unknown]
  - Pneumonia [Unknown]
